FAERS Safety Report 16485337 (Version 1)
Quarter: 2019Q2

REPORT INFORMATION
  Report Type: Spontaneous
  Country: CA (occurrence: CA)
  Receive Date: 20190627
  Receipt Date: 20190627
  Transmission Date: 20190711
  Serious: No
  Sender: FDA-Public Use
  Company Number: CA-VIRTUS PHARMACEUTICALS, LLC-2018VTS00085

PATIENT
  Sex: Female
  Weight: 74.83 kg

DRUGS (1)
  1. PROMETRIUM [Suspect]
     Active Substance: PROGESTERONE
     Indication: HYPERPLASIA
     Dosage: UNK, 1X/DAY
     Route: 048
     Dates: start: 2003, end: 2003

REACTIONS (3)
  - Fatigue [Recovered/Resolved]
  - Off label use [Recovered/Resolved]
  - Unevaluable event [Unknown]
